FAERS Safety Report 13674986 (Version 1)
Quarter: 2017Q2

REPORT INFORMATION
  Report Type: Spontaneous
  Country: HU (occurrence: HU)
  Receive Date: 20170621
  Receipt Date: 20170621
  Transmission Date: 20170830
  Serious: Yes (Other)
  Sender: FDA-Public Use
  Company Number: HU-BAYER-2017-114872

PATIENT
  Sex: Female

DRUGS (1)
  1. MIRENA [Suspect]
     Active Substance: LEVONORGESTREL
     Dosage: 20 MCG/24HR, CONT
     Route: 015
     Dates: start: 201703

REACTIONS (3)
  - Weight increased [Not Recovered/Not Resolved]
  - Night sweats [Not Recovered/Not Resolved]
  - Genital haemorrhage [Not Recovered/Not Resolved]
